FAERS Safety Report 4665422-2 (Version None)
Quarter: 2005Q2

REPORT INFORMATION
  Report Type: 
  Country: None (occurrence: None)
  Receive Date: 20050518
  Receipt Date: 20050518
  Transmission Date: 20051028
  Serious: Yes (Hospitalization)
  Sender: FDA-Public Use
  Company Number: None

PATIENT
  Sex: Male

DRUGS (11)
  1. POTASSIUM CHLORIDE [Suspect]
     Dosage: 16 MEQ  DAILY ORAL
     Route: 048
     Dates: start: 20041214, end: 20050121
  2. LISINOPRIL [Suspect]
     Indication: HYPERTENSION
     Dosage: 5 MG DAILY ORAL
     Route: 048
     Dates: start: 20041108, end: 20050121
  3. AMANTADINE HCL [Concomitant]
  4. CITALOPRAM [Concomitant]
  5. METOPROLOL [Concomitant]
  6. OMEPRAZOLE [Concomitant]
  7. QUETIAPINE [Concomitant]
  8. WARFARIN [Concomitant]
  9. BISACODYL [Concomitant]
  10. INSULIN [Concomitant]
  11. EPOGEN [Concomitant]

REACTIONS (1)
  - BLOOD POTASSIUM INCREASED [None]
